FAERS Safety Report 15558958 (Version 1)
Quarter: 2018Q4

REPORT INFORMATION
  Report Type: Spontaneous
  Country: US (occurrence: US)
  Receive Date: 20181029
  Receipt Date: 20181029
  Transmission Date: 20190205
  Serious: Yes (Other)
  Sender: FDA-Public Use
  Company Number: US-AMGEN-USASP2018150004

PATIENT

DRUGS (1)
  1. ENBREL [Suspect]
     Active Substance: ETANERCEPT
     Indication: ANKYLOSING SPONDYLITIS
     Dosage: UNK
     Route: 065

REACTIONS (13)
  - Ankylosing spondylitis [Unknown]
  - Skin disorder [Unknown]
  - Chronic fatigue syndrome [Unknown]
  - Gastrointestinal disorder [Unknown]
  - Drug effect decreased [Unknown]
  - Ill-defined disorder [Unknown]
  - Uveitis [Unknown]
  - Musculoskeletal stiffness [Unknown]
  - Fibromyalgia [Unknown]
  - Pain [Unknown]
  - Migraine [Unknown]
  - Anxiety [Unknown]
  - Asthenia [Unknown]
